FAERS Safety Report 8179200-3 (Version None)
Quarter: 2012Q1

REPORT INFORMATION
  Report Type: 
  Country: None (occurrence: None)
  Receive Date: 20120227
  Receipt Date: 20120215
  Transmission Date: 20120608
  Serious: Yes (Hospitalization)
  Sender: FDA-Public Use
  Company Number: 1174825

PATIENT
  Age: 38 Year
  Sex: Male

DRUGS (1)
  1. PENTOSTATIN [Suspect]
     Indication: PRODUCT USED FOR UNKNOWN INDICATION
     Dosage: SINGLE ADMINISTRATION, INTRAVENOUS (NOT OTHERWISE SPECIFIED)
     Route: 042
     Dates: start: 20111104

REACTIONS (6)
  - AGRANULOCYTOSIS [None]
  - HAEMOGLOBIN DECREASED [None]
  - PLATELET COUNT DECREASED [None]
  - ANKYLOSING SPONDYLITIS [None]
  - CELLULITIS [None]
  - BONE MARROW FAILURE [None]
